FAERS Safety Report 7492574-1 (Version None)
Quarter: 2011Q2

REPORT INFORMATION
  Report Type: 
  Country: None (occurrence: None)
  Receive Date: 20110519
  Receipt Date: 20110420
  Transmission Date: 20111010
  Serious: No
  Sender: FDA-Public Use
  Company Number: US-BAYER-2011-035240

PATIENT
  Age: 45 Year
  Sex: Male
  Weight: 147 kg

DRUGS (3)
  1. LISINOPRIL [Concomitant]
  2. TOPROL-XL [Concomitant]
  3. ALEVE (CAPLET) [Suspect]
     Indication: ARTHRITIS
     Dosage: 2 DF, QD (BOTTLE COUNT 100S)
     Dates: start: 20110301

REACTIONS (1)
  - NO ADVERSE EVENT [None]
